FAERS Safety Report 20734892 (Version 4)
Quarter: 2022Q2

REPORT INFORMATION
  Report Type: Report from Study
  Country: GB (occurrence: GB)
  Receive Date: 20220421
  Receipt Date: 20220524
  Transmission Date: 20220721
  Serious: Yes (Other)
  Sender: FDA-Public Use
  Company Number: GB-SAMSUNG BIOEPIS-SB-2022-09599

PATIENT
  Sex: Female

DRUGS (2)
  1. IMRALDI [Suspect]
     Active Substance: ADALIMUMAB
     Indication: Psoriatic arthropathy
     Route: 058
     Dates: start: 20220328
  2. LEFLUNOMIDE [Suspect]
     Active Substance: LEFLUNOMIDE
     Indication: Product used for unknown indication
     Dosage: UNKNOWN
     Route: 065

REACTIONS (13)
  - White blood cell count increased [Unknown]
  - Psoriatic arthropathy [Unknown]
  - Nasopharyngitis [Unknown]
  - Malaise [Unknown]
  - Sinusitis [Unknown]
  - Anxiety [Unknown]
  - Headache [Unknown]
  - Feeling cold [Unknown]
  - Chills [Unknown]
  - Dry skin [Not Recovered/Not Resolved]
  - Pain in extremity [Unknown]
  - Dysphagia [Unknown]
  - Drug ineffective [Unknown]
